FAERS Safety Report 6392289-7 (Version None)
Quarter: 2009Q4

REPORT INFORMATION
  Report Type: 
  Country: None (occurrence: None)
  Receive Date: 20091007
  Receipt Date: 20090929
  Transmission Date: 20100525
  Serious: Yes (Death)
  Sender: FDA-Public Use
  Company Number: NL-ABBOTT-09P-114-0581710-00

PATIENT
  Age: 7 Year
  Sex: Male

DRUGS (8)
  1. DEPAKENE [Suspect]
     Indication: TONIC CONVULSION
     Dosage: 40 MG/ML
     Route: 048
     Dates: start: 20040901, end: 20080101
  2. DEPAKENE [Suspect]
     Route: 048
     Dates: start: 20080101, end: 20081003
  3. ANTIBIOTICS [Concomitant]
     Indication: DRUG USE FOR UNKNOWN INDICATION
  4. MULTIPLE CONCOMITANT PRESCRIPTIONS [Concomitant]
  5. FRISIUM [Concomitant]
     Indication: DRUG USE FOR UNKNOWN INDICATION
     Route: 065
  6. ATROVENT [Concomitant]
     Indication: DRUG USE FOR UNKNOWN INDICATION
     Route: 065
  7. NEXIUM [Concomitant]
     Indication: DRUG USE FOR UNKNOWN INDICATION
  8. AMOXICILLIN [Concomitant]
     Indication: PNEUMONIA
     Dates: start: 20090901

REACTIONS (8)
  - ARRHYTHMIA [None]
  - EPISTAXIS [None]
  - GINGIVAL BLEEDING [None]
  - HAEMORRHAGE SUBCUTANEOUS [None]
  - PNEUMONIA [None]
  - PULMONARY HAEMORRHAGE [None]
  - THROMBOCYTOPENIC PURPURA [None]
  - THROMBOSIS [None]
